FAERS Safety Report 8050423-7 (Version None)
Quarter: 2012Q1

REPORT INFORMATION
  Report Type: 
  Country: None (occurrence: None)
  Receive Date: 20120117
  Receipt Date: 20120110
  Transmission Date: 20120608
  Serious: Yes (Hospitalization, Disabling)
  Sender: FDA-Public Use
  Company Number: SI-B.I. PHARMACEUTICALS,INC./RIDGEFIELD-2012-AP-00014AP

PATIENT
  Age: 70 Year
  Sex: Female

DRUGS (5)
  1. PRADAXA [Suspect]
     Indication: KNEE ARTHROPLASTY
     Dosage: 150 MG
     Route: 048
     Dates: start: 20111122, end: 20111203
  2. BONIVA [Concomitant]
     Indication: OSTEOPOROSIS
     Dosage: 5 MG
  3. AMPRIL [Concomitant]
     Indication: HYPERTENSION
     Dosage: 10 MG
  4. ADALAT [Concomitant]
     Indication: HYPERTENSION
     Dosage: 60 MG
  5. ULTOP [Concomitant]
     Indication: GASTROOESOPHAGEAL REFLUX DISEASE
     Dosage: 20 MG

REACTIONS (2)
  - THROMBOCYTOSIS [None]
  - ATRIAL FIBRILLATION [None]
